FAERS Safety Report 23602806 (Version 1)
Quarter: 2024Q1

REPORT INFORMATION
  Report Type: Spontaneous
  Country: AU (occurrence: AU)
  Receive Date: 20240306
  Receipt Date: 20240306
  Transmission Date: 20240410
  Serious: Yes (Hospitalization, Other)
  Sender: FDA-Public Use
  Company Number: AU-GILEAD-2024-0664414

PATIENT
  Age: 51 Year
  Sex: Female

DRUGS (1)
  1. YESCARTA [Suspect]
     Active Substance: AXICABTAGENE CILOLEUCEL
     Indication: High-grade B-cell lymphoma
     Dosage: UNK (DAY 0)
     Route: 065

REACTIONS (19)
  - Clostridium difficile colitis [Unknown]
  - Pneumonia necrotising [Unknown]
  - Cytomegalovirus infection reactivation [Unknown]
  - Pseudomonas test positive [Unknown]
  - Pseudomonas test positive [Unknown]
  - Aspergillus infection [Unknown]
  - Enterococcal bacteraemia [Unknown]
  - Pulmonary haemorrhage [Unknown]
  - Physical deconditioning [Unknown]
  - Cytopenia [Unknown]
  - Platelet count decreased [Unknown]
  - B-cell aplasia [Unknown]
  - Cardiomyopathy [Unknown]
  - Respiratory failure [Unknown]
  - Haemophagocytic lymphohistiocytosis [Unknown]
  - Immune effector cell-associated neurotoxicity syndrome [Unknown]
  - Cytokine release syndrome [Unknown]
  - Delirium [Unknown]
  - Parainfluenzae virus infection [Unknown]
